FAERS Safety Report 10466068 (Version 3)
Quarter: 2015Q2

REPORT INFORMATION
  Report Type: Spontaneous
  Country: CA (occurrence: CA)
  Receive Date: 20140922
  Receipt Date: 20150505
  Transmission Date: 20150821
  Serious: Yes (Hospitalization)
  Sender: FDA-Public Use
  Company Number: CA-ROCHE-1463999

PATIENT
  Sex: Male

DRUGS (8)
  1. XOLAIR [Suspect]
     Active Substance: OMALIZUMAB
     Indication: ASTHMA
     Route: 058
     Dates: start: 20140417
  2. XOLAIR [Suspect]
     Active Substance: OMALIZUMAB
     Route: 058
     Dates: start: 20141224
  3. ZENHALE [Concomitant]
     Active Substance: FORMOTEROL FUMARATE\MOMETASONE FUROATE
  4. PREDNISONE. [Concomitant]
     Active Substance: PREDNISONE
  5. SPIRIVA [Concomitant]
     Active Substance: TIOTROPIUM BROMIDE MONOHYDRATE
  6. SINGULAIR [Concomitant]
     Active Substance: MONTELUKAST SODIUM
  7. VENTOLIN [Concomitant]
     Active Substance: ALBUTEROL SULFATE
  8. CORTIZONE 10 [Concomitant]
     Active Substance: HYDROCORTISONE

REACTIONS (8)
  - Cough [Unknown]
  - Dyspnoea [Unknown]
  - Nerve compression [Unknown]
  - Obstructive airways disorder [Unknown]
  - Productive cough [Unknown]
  - Drug ineffective [Unknown]
  - Bone cyst [Unknown]
  - Cyst rupture [Unknown]
